FAERS Safety Report 17338915 (Version 1)
Quarter: 2020Q1

REPORT INFORMATION
  Report Type: Spontaneous
  Country: PL (occurrence: PL)
  Receive Date: 20200129
  Receipt Date: 20200129
  Transmission Date: 20200409
  Serious: Yes (Other)
  Sender: FDA-Public Use
  Company Number: PL-PFIZER INC-2020033964

PATIENT
  Sex: Female

DRUGS (2)
  1. MYDOCALM FORTE [Concomitant]
     Dosage: UNK
  2. CELEBREX [Suspect]
     Active Substance: CELECOXIB
     Dosage: 200 MG, DAILY

REACTIONS (3)
  - Erythema [Unknown]
  - Oedema [Recovered/Resolved]
  - Dermatitis bullous [Recovered/Resolved]
